FAERS Safety Report 12834948 (Version 2)
Quarter: 2016Q4

REPORT INFORMATION
  Report Type: Report from Study
  Country: KR (occurrence: KR)
  Receive Date: 20161010
  Receipt Date: 20161021
  Transmission Date: 20170207
  Serious: Yes (Death, Hospitalization)
  Sender: FDA-Public Use
  Company Number: KR-B.I. PHARMACEUTICALS,INC./RIDGEFIELD-2014-BI-51489BI

PATIENT
  Age: 53 Year
  Sex: Male
  Weight: 56.7 kg

DRUGS (10)
  1. CELEBREX [Concomitant]
     Active Substance: CELECOXIB
     Indication: PARAESTHESIA
     Route: 048
     Dates: start: 20140509, end: 20140806
  2. AFATINIB [Suspect]
     Active Substance: AFATINIB
     Indication: NON-SMALL CELL LUNG CANCER
     Dosage: STRENGTH: 40 MG
     Route: 048
     Dates: start: 20140122, end: 20140707
  3. AFATINIB [Suspect]
     Active Substance: AFATINIB
     Indication: EGFR GENE MUTATION
  4. RINOEBASTEL [Concomitant]
     Indication: COUGH
     Dosage: STRENGTH: 10/120 MG
     Route: 048
     Dates: start: 20140704, end: 20140801
  5. IR CODON [Concomitant]
     Indication: PAIN
     Route: 048
     Dates: start: 20140511, end: 20140803
  6. CODAEWON [Concomitant]
     Indication: COUGH
     Route: 048
     Dates: start: 20140704, end: 20140806
  7. TARGIN [Concomitant]
     Active Substance: NALOXONE HYDROCHLORIDE\OXYCODONE HYDROCHLORIDE
     Indication: PAIN IN EXTREMITY
     Dosage: PR; STRENGTH: 10/5 MG
     Route: 048
     Dates: start: 20140509, end: 20140801
  8. LYRICA [Concomitant]
     Active Substance: PREGABALIN
     Indication: PARAESTHESIA
     Route: 048
     Dates: start: 20140510, end: 20140806
  9. ACEPECT [Concomitant]
     Indication: COUGH
     Route: 048
     Dates: start: 20140704, end: 20140806
  10. TRANSAMIN [Concomitant]
     Active Substance: TRANEXAMIC ACID
     Indication: HAEMOPTYSIS
     Route: 048
     Dates: start: 20140711, end: 20140805

REACTIONS (3)
  - Neoplasm progression [Fatal]
  - Tumour pain [Unknown]
  - Decreased appetite [Unknown]

NARRATIVE: CASE EVENT DATE: 20140729
